FAERS Safety Report 4486433-6 (Version None)
Quarter: 2004Q4

REPORT INFORMATION
  Report Type: 
  Country: None (occurrence: None)
  Receive Date: 20041026
  Receipt Date: 20041026
  Transmission Date: 20050328
  Serious: Yes (Hospitalization)
  Sender: FDA-Public Use
  Company Number: None

PATIENT
  Age: 64 Year
  Sex: Male

DRUGS (9)
  1. LISINOPRIL [Suspect]
     Indication: DIABETES MELLITUS
  2. LISINOPRIL [Suspect]
     Indication: HYPERTENSION
  3. CARDIZEM [Concomitant]
  4. LASIX [Concomitant]
  5. ZESTRIL [Concomitant]
  6. GLUCOPHAGE [Concomitant]
  7. GLUCOTROL [Concomitant]
  8. . [Concomitant]
  9. POTASSIUM SUPPLEMENTATION [Concomitant]

REACTIONS (2)
  - LOCALISED OEDEMA [None]
  - ODYNOPHAGIA [None]
